FAERS Safety Report 23470904 (Version 1)
Quarter: 2024Q1

REPORT INFORMATION
  Report Type: Spontaneous
  Country: GB (occurrence: None)
  Receive Date: 20240202
  Receipt Date: 20240202
  Transmission Date: 20240409
  Serious: Yes (Other)
  Sender: FDA-Public Use
  Company Number: 2024A015746

PATIENT
  Age: 48 Year
  Sex: Female
  Weight: 74 kg

DRUGS (1)
  1. DURVALUMAB [Suspect]
     Active Substance: DURVALUMAB
     Indication: Bile duct cancer
     Route: 042
     Dates: start: 20230707

REACTIONS (4)
  - Vasculitis [Recovering/Resolving]
  - Cutaneous vasculitis [Recovering/Resolving]
  - Henoch-Schonlein purpura [Unknown]
  - Neutrophilic dermatosis [Unknown]

NARRATIVE: CASE EVENT DATE: 20231208
